FAERS Safety Report 23565986 (Version 1)
Quarter: 2024Q1

REPORT INFORMATION
  Report Type: Spontaneous
  Country: US (occurrence: US)
  Receive Date: 20240226
  Receipt Date: 20240226
  Transmission Date: 20240410
  Serious: No
  Sender: FDA-Public Use
  Company Number: US-BIOGEN-2024BI01251743

PATIENT
  Age: 71 Year
  Sex: Female

DRUGS (4)
  1. AVONEX PEN [Suspect]
     Active Substance: INTERFERON BETA-1A
     Indication: Multiple sclerosis
     Route: 050
  2. AVONEX PEN [Suspect]
     Active Substance: INTERFERON BETA-1A
  3. AVONEX PEN [Suspect]
     Active Substance: INTERFERON BETA-1A
  4. AVONEX PEN [Suspect]
     Active Substance: INTERFERON BETA-1A

REACTIONS (7)
  - Arthritis [Unknown]
  - Pneumonia [Unknown]
  - Nasopharyngitis [Unknown]
  - Asthma [Unknown]
  - Sinusitis [Unknown]
  - Bronchitis [Unknown]
  - Balance disorder [Unknown]

NARRATIVE: CASE EVENT DATE: 20240201
